FAERS Safety Report 9458100 (Version 4)
Quarter: 2014Q1

REPORT INFORMATION
  Report Type: Spontaneous
  Country: GB (occurrence: GB)
  Receive Date: 20130814
  Receipt Date: 20140219
  Transmission Date: 20141002
  Serious: Yes (Death, Hospitalization, Other)
  Sender: FDA-Public Use
  Company Number: PHFR2012GB004849

PATIENT
  Age: 88 Year
  Sex: Female

DRUGS (9)
  1. CLOZARIL [Suspect]
     Indication: SCHIZOPHRENIA
     Dosage: 25 MG, BID
     Route: 048
     Dates: start: 20041208
  2. CLOZARIL [Suspect]
     Dosage: 12.5 MG, QD
     Route: 048
  3. RAMIPRIL [Concomitant]
     Indication: RENAL DISORDER
     Dosage: 2.5 MG, UNK
     Dates: start: 20120719
  4. ASPIRIN [Concomitant]
     Indication: HYPERTENSION
     Dosage: 75 MG, DAILY
     Route: 048
     Dates: start: 200702
  5. MACROGOL [Concomitant]
     Indication: CONSTIPATION
     Dosage: 1 TO 2 SACHET
     Route: 048
  6. BECONASE [Concomitant]
     Indication: NASAL POLYPS
     Dosage: 2 DF (2 PUFFS), UNK
     Route: 055
     Dates: start: 200507
  7. LANSOPRAZOLE [Concomitant]
     Indication: GASTRIC DISORDER
     Dosage: 15 MG, DAILY
     Route: 048
     Dates: start: 201211
  8. RISEDRONATE [Concomitant]
     Indication: OSTEOPOROSIS
     Dosage: 35 MG, DAILY
     Route: 048
     Dates: start: 201306
  9. ADCAL D3 [Concomitant]
     Indication: OSTEOPOROSIS
     Dosage: 1 DF
     Route: 048
     Dates: start: 201306

REACTIONS (13)
  - Death [Fatal]
  - Cardiac disorder [Unknown]
  - Fall [Unknown]
  - Orthostatic hypotension [Unknown]
  - Aortic aneurysm rupture [Unknown]
  - Breast cancer [Not Recovered/Not Resolved]
  - Aortic aneurysm [Not Recovered/Not Resolved]
  - Renal failure chronic [Not Recovered/Not Resolved]
  - Haemoglobin decreased [Not Recovered/Not Resolved]
  - Type 2 diabetes mellitus [Not Recovered/Not Resolved]
  - Blood thyroid stimulating hormone increased [Unknown]
  - Hypertension [Not Recovered/Not Resolved]
  - Hypotension [Recovering/Resolving]
